FAERS Safety Report 7489470-2 (Version None)
Quarter: 2011Q2

REPORT INFORMATION
  Report Type: 
  Country: None (occurrence: None)
  Receive Date: 20110518
  Receipt Date: 20110511
  Transmission Date: 20111010
  Serious: Yes (Hospitalization, Other)
  Sender: FDA-Public Use
  Company Number: US-RB-024984-11

PATIENT
  Age: 61 Year
  Sex: Male

DRUGS (1)
  1. SUBOXONE [Suspect]
     Indication: PRODUCT USED FOR UNKNOWN INDICATION
     Dosage: DOSING INFORMATION UNKNOWN / SUBLINGUAL FILM
     Route: 065

REACTIONS (4)
  - SKIN CANCER [None]
  - PAIN [None]
  - THROMBOSIS [None]
  - DRUG DEPENDENCE [None]
